FAERS Safety Report 13321743 (Version 3)
Quarter: 2017Q2

REPORT INFORMATION
  Report Type: Spontaneous
  Country: DE (occurrence: DE)
  Receive Date: 20170309
  Receipt Date: 20170412
  Transmission Date: 20170830
  Serious: Yes (Other)
  Sender: FDA-Public Use
  Company Number: DE-PFIZER INC-2017097036

PATIENT
  Age: 49 Year
  Sex: Female

DRUGS (5)
  1. CORDAREX [Suspect]
     Active Substance: AMIODARONE
     Indication: ATRIAL FLUTTER
  2. BONADEA [Concomitant]
     Dosage: UNK
     Dates: start: 201605
  3. ZINC. [Concomitant]
     Active Substance: ZINC
     Dosage: UNK
  4. CORDAREX [Suspect]
     Active Substance: AMIODARONE
     Indication: ATRIAL FIBRILLATION
     Dosage: 200 MG, 1X/DAY
     Route: 048
     Dates: start: 201607, end: 20161115
  5. PRADAXA [Concomitant]
     Active Substance: DABIGATRAN ETEXILATE MESYLATE
     Dosage: UNK
     Dates: start: 201605

REACTIONS (3)
  - Pneumonia [Recovered/Resolved]
  - Pleural effusion [Recovered/Resolved]
  - Viral upper respiratory tract infection [Recovered/Resolved]

NARRATIVE: CASE EVENT DATE: 20170212
